FAERS Safety Report 8957133 (Version 1)
Quarter: 2012Q4

REPORT INFORMATION
  Report Type: 
  Country: US (occurrence: US)
  Receive Date: 20121211
  Receipt Date: 20121211
  Transmission Date: 20130627
  Serious: No
  Sender: FDA-Public Use
  Company Number: US-JNJFOC-20121203925

PATIENT
  Sex: Male
  Weight: 113.4 kg

DRUGS (2)
  1. DURAGESIC [Suspect]
     Indication: PAIN
     Dosage: 75 ug/hr + 75 ug/hr
     Route: 062
     Dates: start: 1999
  2. DURAGESIC [Suspect]
     Indication: PAIN
     Dosage: 75 ug/hr + 75 ug/hr
     Route: 062
     Dates: start: 201206

REACTIONS (12)
  - Feeling abnormal [Recovered/Resolved]
  - Product quality issue [Unknown]
  - Pain [Recovered/Resolved]
  - Scar [Recovered/Resolved]
  - Hyperhidrosis [Not Recovered/Not Resolved]
  - Product quality issue [Not Recovered/Not Resolved]
  - Drug administered at inappropriate site [Not Recovered/Not Resolved]
  - Wrong technique in drug usage process [Not Recovered/Not Resolved]
  - Wrong technique in drug usage process [Not Recovered/Not Resolved]
  - Wrong technique in drug usage process [Recovered/Resolved]
  - Product quality issue [Unknown]
  - Product quality issue [Unknown]
